FAERS Safety Report 5491997-X (Version None)
Quarter: 2007Q4

REPORT INFORMATION
  Report Type: 
  Country: None (occurrence: None)
  Receive Date: 20071022
  Receipt Date: 20071016
  Transmission Date: 20080405
  Serious: Yes (Life-Threatening)
  Sender: FDA-Public Use
  Company Number: B0489060A

PATIENT
  Age: 29 Year
  Sex: Female
  Weight: 48 kg

DRUGS (4)
  1. PAXIL [Suspect]
     Indication: PANIC DISORDER
     Route: 048
     Dates: start: 20070703
  2. DEPAS [Suspect]
     Route: 048
  3. DEPAS [Suspect]
     Indication: ANXIETY
     Dosage: 1MG THREE TIMES PER DAY
     Route: 048
     Dates: start: 20070710
  4. SILECE [Concomitant]
     Indication: INSOMNIA
     Dosage: 2MG PER DAY
     Route: 048
     Dates: start: 20070710

REACTIONS (1)
  - SUICIDE ATTEMPT [None]
